FAERS Safety Report 4632843-3 (Version None)
Quarter: 2005Q2

REPORT INFORMATION
  Report Type: 
  Country: None (occurrence: None)
  Receive Date: 20050325
  Receipt Date: 20050128
  Transmission Date: 20051028
  Serious: No
  Sender: FDA-Public Use
  Company Number: USA041286342

PATIENT
  Age: 82 Year
  Sex: Female

DRUGS (3)
  1. FORTEO [Suspect]
     Indication: OSTEOPOROSIS
     Dosage: 20 UG
     Dates: start: 20041215, end: 20041218
  2. VICODIN [Concomitant]
  3. NEXIUM [Concomitant]

REACTIONS (17)
  - ARTHROPATHY [None]
  - ASTHENIA [None]
  - CHEST WALL PAIN [None]
  - DIZZINESS [None]
  - HEADACHE [None]
  - HEART RATE IRREGULAR [None]
  - INJECTION SITE HAEMORRHAGE [None]
  - INJECTION SITE MASS [None]
  - INSOMNIA [None]
  - MUSCLE STRAIN [None]
  - MYALGIA [None]
  - NAUSEA [None]
  - OEDEMA PERIPHERAL [None]
  - PAIN [None]
  - PALPITATIONS [None]
  - RESTLESSNESS [None]
  - SKIN DISCOLOURATION [None]
